FAERS Safety Report 24066457 (Version 2)
Quarter: 2024Q3

REPORT INFORMATION
  Report Type: Spontaneous
  Country: FR (occurrence: FR)
  Receive Date: 20240709
  Receipt Date: 20240711
  Transmission Date: 20241017
  Serious: Yes (Other)
  Sender: FERRING
  Company Number: FR-FERRINGPH-2024FE03577

PATIENT

DRUGS (6)
  1. FIRMAGON [Suspect]
     Active Substance: DEGARELIX ACETATE
     Indication: Prostate cancer
     Dosage: 80 MG, MONTHLY
     Route: 065
     Dates: start: 202402
  2. FIRMAGON [Suspect]
     Active Substance: DEGARELIX ACETATE
     Dosage: 240 MG, ONCE/SINGLE (120MG X 2)
     Route: 065
     Dates: start: 202401, end: 202401
  3. CANDESARTAN [Concomitant]
     Active Substance: CANDESARTAN
     Dosage: UNK
     Dates: start: 2011
  4. CLOPIDOGREL [Concomitant]
     Active Substance: CLOPIDOGREL BISULFATE
     Dosage: UNK
     Dates: start: 2011
  5. ATENOLOL [Concomitant]
     Active Substance: ATENOLOL
     Dosage: UNK
     Dates: start: 2011
  6. ATORVASTATIN [Concomitant]
     Active Substance: ATORVASTATIN
     Dosage: UNK
     Dates: start: 2011

REACTIONS (3)
  - Muscular weakness [Not Recovered/Not Resolved]
  - Limb discomfort [Not Recovered/Not Resolved]
  - Hot flush [Not Recovered/Not Resolved]

NARRATIVE: CASE EVENT DATE: 20240401
